FAERS Safety Report 19206955 (Version 1)
Quarter: 2021Q2

REPORT INFORMATION
  Report Type: Spontaneous
  Country: ES (occurrence: ES)
  Receive Date: 20210503
  Receipt Date: 20210503
  Transmission Date: 20210717
  Serious: Yes (Other)
  Sender: FDA-Public Use
  Company Number: ES-AZURITY PHARMACEUTICALS, INC.-2021AZY00039

PATIENT
  Sex: Female

DRUGS (1)
  1. METHOTREXATE. [Suspect]
     Active Substance: METHOTREXATE
     Indication: PRECURSOR B-LYMPHOBLASTIC LYMPHOMA STAGE IV
     Dosage: 7 DOSES
     Route: 037

REACTIONS (4)
  - Myelitis [Recovering/Resolving]
  - Leukoencephalopathy [Unknown]
  - Paraparesis [Unknown]
  - Spinal cord disorder [Unknown]
